FAERS Safety Report 17326384 (Version 7)
Quarter: 2023Q2

REPORT INFORMATION
  Report Type: Spontaneous
  Country: US (occurrence: US)
  Receive Date: 20200127
  Receipt Date: 20230412
  Transmission Date: 20230722
  Serious: Yes (Other)
  Sender: FDA-Public Use
  Company Number: US-PFIZER INC-2020035956

PATIENT
  Age: 43 Year
  Sex: Female

DRUGS (4)
  1. IBRANCE [Suspect]
     Active Substance: PALBOCICLIB
     Indication: Breast cancer metastatic
     Dosage: 75 MG (ONCE DAILY 3 WEEKS ON AND 1 WEEK OFF AT NIGHT)
     Dates: start: 202001
  2. IBRANCE [Suspect]
     Active Substance: PALBOCICLIB
     Dosage: 75 MG, CYCLIC (75MG ONCE DAILY 3 WEEKS ON AND 1 WEEK OFF AT NIGHT)
     Dates: start: 202203
  3. ASPIRIN [Concomitant]
     Active Substance: ASPIRIN
     Dosage: UNK
  4. LEVOTHYROXINE [Concomitant]
     Active Substance: LEVOTHYROXINE
     Indication: Thyroid disorder
     Dosage: UNK (HALF PILL OF LEVOTHYROXINE)

REACTIONS (17)
  - White blood cell count decreased [Unknown]
  - Product dose omission issue [Unknown]
  - Neutrophil count decreased [Unknown]
  - Full blood count abnormal [Unknown]
  - Amnesia [Not Recovered/Not Resolved]
  - Neurological symptom [Not Recovered/Not Resolved]
  - Pain [Unknown]
  - Abdominal discomfort [Unknown]
  - Drug intolerance [Unknown]
  - COVID-19 [Unknown]
  - Crying [Unknown]
  - Nausea [Unknown]
  - Post-traumatic stress disorder [Unknown]
  - Bone pain [Unknown]
  - Condition aggravated [Unknown]
  - Loss of personal independence in daily activities [Unknown]
  - Pelvic pain [Unknown]

NARRATIVE: CASE EVENT DATE: 20200101
